FAERS Safety Report 6892844-1 (Version None)
Quarter: 2010Q3

REPORT INFORMATION
  Report Type: 
  Country: None (occurrence: None)
  Receive Date: 20100731
  Receipt Date: 20080930
  Transmission Date: 20110219
  Serious: Yes (Death, Other)
  Sender: FDA-Public Use
  Company Number: US-PFIZER INC-2008041838

PATIENT
  Sex: Male

DRUGS (6)
  1. NEURONTIN [Suspect]
     Indication: DEPRESSION
  2. NEURONTIN [Suspect]
     Indication: PAIN
  3. PAXIL [Concomitant]
     Dosage: EVERY MORNING
  4. TRAZODONE [Concomitant]
     Dosage: AT BED TIME
  5. ZESTRIL [Concomitant]
  6. PRAVACHOL [Concomitant]
     Dosage: AT BED TIME

REACTIONS (4)
  - ANXIETY [None]
  - COMPLETED SUICIDE [None]
  - DRUG INEFFECTIVE FOR UNAPPROVED INDICATION [None]
  - SUICIDAL IDEATION [None]
